FAERS Safety Report 7832873-4 (Version None)
Quarter: 2011Q4

REPORT INFORMATION
  Report Type: 
  Country: None (occurrence: None)
  Receive Date: 20111024
  Receipt Date: 20111018
  Transmission Date: 20120403
  Serious: Yes (Life-Threatening, Hospitalization)
  Sender: FDA-Public Use
  Company Number: US-BRISTOL-MYERS SQUIBB COMPANY-16175796

PATIENT
  Age: 68 Year
  Sex: Male

DRUGS (1)
  1. TAXOL [Suspect]
     Indication: PROSTATE CANCER

REACTIONS (1)
  - ACUTE LUNG INJURY [None]
